FAERS Safety Report 5525358-1 (Version None)
Quarter: 2007Q4

REPORT INFORMATION
  Report Type: 
  Country: None (occurrence: None)
  Receive Date: 20071119
  Receipt Date: 20071106
  Transmission Date: 20080405
  Serious: Yes (Death, Hospitalization, Other)
  Sender: FDA-Public Use
  Company Number: 42046-1

PATIENT
  Age: 42 Year
  Sex: Female
  Weight: 63 kg

DRUGS (1)
  1. DACARBAZINE [Suspect]
     Indication: MALIGNANT MELANOMA
     Dosage: 1700MG/EVERY 22 DAYS/IV
     Route: 042
     Dates: start: 20070323, end: 20070413

REACTIONS (4)
  - BACK PAIN [None]
  - DISEASE PROGRESSION [None]
  - PNEUMONIA [None]
  - PULMONARY EMBOLISM [None]
